FAERS Safety Report 23286351 (Version 4)
Quarter: 2024Q1

REPORT INFORMATION
  Report Type: Spontaneous
  Country: US (occurrence: US)
  Receive Date: 20231212
  Receipt Date: 20240209
  Transmission Date: 20240410
  Serious: Yes (Other)
  Sender: FDA-Public Use
  Company Number: US-BAYER-2023A176372

PATIENT
  Age: 53 Year
  Sex: Female
  Weight: 76.644 kg

DRUGS (2)
  1. MIRENA [Suspect]
     Active Substance: LEVONORGESTREL
     Indication: Contraception
     Dosage: 20?G/DAY
     Route: 015
     Dates: start: 20210125, end: 20231207
  2. MIRENA [Suspect]
     Active Substance: LEVONORGESTREL
     Indication: Heavy menstrual bleeding

REACTIONS (4)
  - Embedded device [Recovered/Resolved with Sequelae]
  - Device breakage [None]
  - Complication of device removal [None]
  - Complication of device removal [None]

NARRATIVE: CASE EVENT DATE: 20231206
